FAERS Safety Report 12835963 (Version 1)
Quarter: 2016Q4

REPORT INFORMATION
  Report Type: Spontaneous
  Country: US (occurrence: US)
  Receive Date: 20161011
  Receipt Date: 20161011
  Transmission Date: 20170207
  Serious: Yes (Other)
  Sender: FDA-Public Use
  Company Number: US-PFIZER INC-2016473536

PATIENT
  Age: 38 Year
  Sex: Female

DRUGS (1)
  1. KERYDIN [Suspect]
     Active Substance: TAVABOROLE
     Indication: ONYCHOMYCOSIS
     Dosage: 1 DROPLET FULL, 1X/DAY
     Route: 061
     Dates: start: 201609, end: 201609

REACTIONS (4)
  - Dyspnoea [Recovered/Resolved]
  - Hypopnoea [Recovered/Resolved]
  - Pharyngeal oedema [Recovered/Resolved]
  - Chest discomfort [Recovered/Resolved]
